FAERS Safety Report 16140954 (Version 2)
Quarter: 2019Q2

REPORT INFORMATION
  Report Type: Report from Study
  Country: IT (occurrence: IT)
  Receive Date: 20190401
  Receipt Date: 20190403
  Transmission Date: 20190711
  Serious: Yes (Hospitalization)
  Sender: FDA-Public Use
  Company Number: IT-BAYER-2019-064045

PATIENT
  Age: 87 Year
  Sex: Female

DRUGS (2)
  1. ACETYLSALICYLIC ACID [Suspect]
     Active Substance: ASPIRIN
     Indication: PROPHYLAXIS
     Dosage: 1 DF, QD
     Dates: end: 20181216
  2. EDOXABAN [Suspect]
     Active Substance: EDOXABAN TOSYLATE
     Indication: ATRIAL FIBRILLATION
     Dosage: 1 DF, QD
     Route: 048
     Dates: end: 20181216

REACTIONS (2)
  - Subdural haematoma [Recovering/Resolving]
  - Labelled drug-drug interaction medication error [None]

NARRATIVE: CASE EVENT DATE: 20181216
